FAERS Safety Report 6869499-5 (Version None)
Quarter: 2010Q3

REPORT INFORMATION
  Report Type: 
  Country: None (occurrence: None)
  Receive Date: 20100722
  Receipt Date: 20100708
  Transmission Date: 20110219
  Serious: Yes (Hospitalization)
  Sender: FDA-Public Use
  Company Number: FR-GENENTECH-304153

PATIENT
  Sex: Female

DRUGS (6)
  1. MABTHERA [Suspect]
     Indication: WALDENSTROM'S MACROGLOBULINAEMIA
     Dosage: UNK
     Route: 042
     Dates: start: 20091105
  2. MABTHERA [Suspect]
     Dosage: 630 MG, UNK
     Route: 042
     Dates: start: 20100409
  3. CYCLOPHOSPHAMIDE [Suspect]
     Indication: WALDENSTROM'S MACROGLOBULINAEMIA
     Dosage: 1260 MG, UNK
     Route: 042
     Dates: start: 20100409
  4. VINCRISTINE [Suspect]
     Indication: WALDENSTROM'S MACROGLOBULINAEMIA
     Dosage: 2 MG, UNK
     Route: 042
     Dates: start: 20100409
  5. DOXORUBICIN HCL [Suspect]
     Indication: WALDENSTROM'S MACROGLOBULINAEMIA
     Dosage: 84 MG, UNK
     Route: 065
     Dates: start: 20100409
  6. DEXAMETHASONE [Concomitant]
     Indication: PRODUCT USED FOR UNKNOWN INDICATION
     Dosage: 20 MG, UNK

REACTIONS (1)
  - FEBRILE BONE MARROW APLASIA [None]
